FAERS Safety Report 18485962 (Version 1)
Quarter: 2020Q4

REPORT INFORMATION
  Report Type: Spontaneous
  Country: IT (occurrence: IT)
  Receive Date: 20201110
  Receipt Date: 20201110
  Transmission Date: 20210114
  Serious: Yes (Hospitalization, Other)
  Sender: FDA-Public Use
  Company Number: IT-AMGEN-ITASP2020179282

PATIENT
  Age: 55 Year
  Sex: Female
  Weight: 90 kg

DRUGS (1)
  1. XGEVA [Suspect]
     Active Substance: DENOSUMAB
     Indication: NEOPLASM RECURRENCE
     Dosage: 120 MILLIGRAM
     Route: 058
     Dates: start: 20181203, end: 20200410

REACTIONS (3)
  - Infection [Recovering/Resolving]
  - Cellulitis [Recovering/Resolving]
  - Osteonecrosis of jaw [Recovering/Resolving]

NARRATIVE: CASE EVENT DATE: 20200508
